FAERS Safety Report 8914610 (Version 2)
Quarter: 2012Q4

REPORT INFORMATION
  Report Type: 
  Country: JP (occurrence: JP)
  Receive Date: 20121119
  Receipt Date: 20121126
  Transmission Date: 20130627
  Serious: Yes (Other)
  Sender: FDA-Public Use
  Company Number: JP-ASTRAZENECA-2012SE86669

PATIENT
  Age: 3 Year
  Sex: Female

DRUGS (3)
  1. MEROPEN [Suspect]
     Indication: PNEUMONIA
     Route: 042
  2. MEROPEN [Suspect]
     Indication: BRONCHITIS
     Route: 042
  3. METHYLPREDNISOLONE [Concomitant]

REACTIONS (1)
  - Interstitial lung disease [Unknown]
